FAERS Safety Report 10582248 (Version 4)
Quarter: 2014Q4

REPORT INFORMATION
  Report Type: Spontaneous
  Country: ES (occurrence: ES)
  Receive Date: 20141113
  Receipt Date: 20141212
  Transmission Date: 20150529
  Serious: Yes (Hospitalization, Other)
  Sender: FDA-Public Use
  Company Number: ES-PFIZER INC-2014310589

PATIENT
  Age: 40 Year
  Sex: Female

DRUGS (8)
  1. SEDOTIME [Concomitant]
     Indication: DEPRESSION
     Dosage: 15 MG, ONCE A DAY
  2. DESVENLAFAXINE SUCCINATE MONOHYDRATE [Suspect]
     Active Substance: DESVENLAFAXINE
     Dosage: 100 MG, ONCE A DAY
     Route: 048
     Dates: start: 20141023, end: 20141102
  3. ALPRAZOLAM. [Concomitant]
     Active Substance: ALPRAZOLAM
     Indication: ANXIETY
     Dosage: 0.5 MG, 3X/DAY (EVERY 8 HOURS)
  4. ANTALGIN ^ROCHE^ [Concomitant]
     Dosage: 550 MG, 2X/DAY (EVERY 12 HOURS)
  5. ALPRAZOLAM. [Concomitant]
     Active Substance: ALPRAZOLAM
     Indication: DEPRESSION
  6. PARIET [Concomitant]
     Active Substance: RABEPRAZOLE SODIUM
     Dosage: 40 MG, 1X/DAY (2 DF OF 20 MG)
  7. DESVENLAFAXINE SUCCINATE MONOHYDRATE [Suspect]
     Active Substance: DESVENLAFAXINE
     Indication: DEPRESSION
     Dosage: 50 MG, UNK
     Route: 048
     Dates: start: 20140924, end: 20141023
  8. ADOLONTA [Concomitant]
     Active Substance: TRAMADOL HYDROCHLORIDE
     Indication: FIBROMYALGIA
     Dosage: 1 DF, 4X/DAY (EVERY 6 HOURS)

REACTIONS (2)
  - Seizure [Recovered/Resolved]
  - Loss of consciousness [Recovered/Resolved]

NARRATIVE: CASE EVENT DATE: 20141102
